FAERS Safety Report 15898048 (Version 1)
Quarter: 2019Q1

REPORT INFORMATION
  Report Type: Spontaneous
  Country: FR (occurrence: FR)
  Receive Date: 20190201
  Receipt Date: 20190201
  Transmission Date: 20190417
  Serious: Yes (Hospitalization)
  Sender: FDA-Public Use
  Company Number: FR-ORION CORPORATION ORION PHARMA-19_00005298

PATIENT
  Age: 73 Year
  Sex: Male
  Weight: 110 kg

DRUGS (13)
  1. IMETH [Suspect]
     Active Substance: METHOTREXATE SODIUM
     Indication: POROKERATOSIS
     Route: 048
     Dates: start: 20180413, end: 20180510
  2. PRADAXA [Concomitant]
     Active Substance: DABIGATRAN ETEXILATE MESYLATE
     Route: 065
  3. SPECIAFOLDINE [Concomitant]
     Active Substance: FOLIC ACID
     Route: 065
  4. FUROSEMIDE. [Concomitant]
     Active Substance: FUROSEMIDE
     Route: 065
  5. LANSOPRAZOLE. [Concomitant]
     Active Substance: LANSOPRAZOLE
     Route: 065
  6. BISOCE [Concomitant]
     Active Substance: BISOPROLOL
     Route: 065
  7. PAROXETINE. [Concomitant]
     Active Substance: PAROXETINE
     Route: 065
  8. LANTUS [Concomitant]
     Active Substance: INSULIN GLARGINE
     Route: 065
  9. KARDEGIC [Concomitant]
     Active Substance: ASPIRIN DL-LYSINE
     Route: 065
  10. PREGABALINE [Concomitant]
     Active Substance: PREGABALIN
     Route: 065
  11. INEGY [Concomitant]
     Active Substance: EZETIMIBE\SIMVASTATIN
     Route: 065
  12. JANUVIA [Concomitant]
     Active Substance: SITAGLIPTIN PHOSPHATE
     Route: 065
  13. ZORAC [Concomitant]
     Active Substance: TAZAROTENE
     Route: 065

REACTIONS (3)
  - Genital erosion [Recovering/Resolving]
  - Product use in unapproved indication [Unknown]
  - Oral mucosa erosion [Recovering/Resolving]

NARRATIVE: CASE EVENT DATE: 201805
